FAERS Safety Report 7115033-4 (Version None)
Quarter: 2010Q4

REPORT INFORMATION
  Report Type: 
  Country: None (occurrence: None)
  Receive Date: 20101122
  Receipt Date: 20101107
  Transmission Date: 20110411
  Serious: Yes (Other)
  Sender: FDA-Public Use
  Company Number: US-RB-015144-10

PATIENT
  Sex: Female

DRUGS (1)
  1. DELSYM [Suspect]
     Route: 048

REACTIONS (3)
  - ATTENTION DEFICIT/HYPERACTIVITY DISORDER [None]
  - DRUG ABUSE [None]
  - HALLUCINATION, AUDITORY [None]
